FAERS Safety Report 25259054 (Version 7)
Quarter: 2025Q3

REPORT INFORMATION
  Report Type: Spontaneous
  Country: CA (occurrence: CA)
  Receive Date: 20250501
  Receipt Date: 20250905
  Transmission Date: 20251021
  Serious: Yes (Other)
  Sender: PFIZER
  Company Number: CA-PFIZER INC-202500079942

PATIENT
  Age: 57 Year
  Sex: Male
  Weight: 138.32 kg

DRUGS (1)
  1. ABRILADA [Suspect]
     Active Substance: ADALIMUMAB-AFZB
     Indication: Hidradenitis
     Route: 058
     Dates: start: 20250411

REACTIONS (13)
  - Type 2 diabetes mellitus [Unknown]
  - Sleep apnoea syndrome [Unknown]
  - Fatigue [Recovered/Resolved]
  - Nausea [Unknown]
  - Decreased appetite [Unknown]
  - Chills [Unknown]
  - Hot flush [Unknown]
  - Middle insomnia [Unknown]
  - Nocturia [Unknown]
  - Blood cholesterol increased [Unknown]
  - Condition aggravated [Not Recovered/Not Resolved]
  - Arthralgia [Unknown]
  - Intentional dose omission [Unknown]

NARRATIVE: CASE EVENT DATE: 20250101
